FAERS Safety Report 13372177 (Version 1)
Quarter: 2017Q1

REPORT INFORMATION
  Report Type: Spontaneous
  Country: US (occurrence: US)
  Receive Date: 20170324
  Receipt Date: 20170324
  Transmission Date: 20170429
  Serious: No
  Sender: FDA-Public Use
  Company Number: None

PATIENT
  Age: 28 Year
  Sex: Female
  Weight: 43.65 kg

DRUGS (3)
  1. KENALOG [Suspect]
     Active Substance: TRIAMCINOLONE ACETONIDE
     Dosage: OTHER FREQUENCY:ONE TIME INJECTION;OTHER ROUTE:INJECTED INTO MUSCLE OF RIGHT HIP AREA?
  2. FLINTSTONE VITAMINS [Concomitant]
  3. MIRENA [Concomitant]
     Active Substance: LEVONORGESTREL

REACTIONS (1)
  - Injection site mass [None]

NARRATIVE: CASE EVENT DATE: 20170222
